FAERS Safety Report 23708071 (Version 1)
Quarter: 2024Q2

REPORT INFORMATION
  Report Type: Spontaneous
  Country: US (occurrence: None)
  Receive Date: 20240331
  Receipt Date: 20240331
  Transmission Date: 20240716
  Serious: Yes (Other)
  Sender: FDA-Public Use
  Company Number: None

PATIENT
  Age: 62 Year
  Sex: Male
  Weight: 84.6 kg

DRUGS (4)
  1. .DELTA.9-TETRAHYDROCANNABINOLIC ACID\HERBALS [Suspect]
     Active Substance: .DELTA.9-TETRAHYDROCANNABINOLIC ACID\HERBALS
     Indication: Anxiety
     Dosage: FREQUENCY : AS NEEDED?
     Route: 055
     Dates: start: 20240305, end: 20240305
  2. .DELTA.9-TETRAHYDROCANNABINOLIC ACID\HERBALS [Suspect]
     Active Substance: .DELTA.9-TETRAHYDROCANNABINOLIC ACID\HERBALS
     Indication: Depression
  3. .DELTA.9-TETRAHYDROCANNABINOLIC ACID\HERBALS [Suspect]
     Active Substance: .DELTA.9-TETRAHYDROCANNABINOLIC ACID\HERBALS
     Indication: Arthritis
  4. .DELTA.9-TETRAHYDROCANNABINOLIC ACID\HERBALS [Suspect]
     Active Substance: .DELTA.9-TETRAHYDROCANNABINOLIC ACID\HERBALS
     Indication: Decreased appetite

REACTIONS (5)
  - Wheezing [None]
  - Headache [None]
  - Tachyphrenia [None]
  - Suspected product tampering [None]
  - Product complaint [None]

NARRATIVE: CASE EVENT DATE: 20240305
